FAERS Safety Report 16046702 (Version 1)
Quarter: 2019Q1

REPORT INFORMATION
  Report Type: Spontaneous
  Country: PT (occurrence: PT)
  Receive Date: 20190307
  Receipt Date: 20190307
  Transmission Date: 20190418
  Serious: Yes (Hospitalization, Other)
  Sender: FDA-Public Use
  Company Number: PT-BRISTOL-MYERS SQUIBB COMPANY-BMS-2019-020869

PATIENT
  Age: 15 Year
  Sex: Female

DRUGS (2)
  1. ENOXAPARIN SODIUM. [Suspect]
     Active Substance: ENOXAPARIN SODIUM
     Indication: ANTICOAGULANT THERAPY
     Dosage: UNK
     Route: 065
  2. WARFARIN SODIUM. [Suspect]
     Active Substance: WARFARIN SODIUM
     Indication: ANTICOAGULANT THERAPY
     Dosage: UNK
     Route: 048

REACTIONS (8)
  - Feeling hot [Unknown]
  - Post thrombotic syndrome [Unknown]
  - Oedema peripheral [Unknown]
  - Syncope [Unknown]
  - Disease recurrence [Unknown]
  - Collateral circulation [Unknown]
  - Pain in extremity [Unknown]
  - Cyanosis [Unknown]
